FAERS Safety Report 9836528 (Version 3)
Quarter: 2020Q3

REPORT INFORMATION
  Report Type: Report from Study
  Country: US (occurrence: US)
  Receive Date: 20140123
  Receipt Date: 20140728
  Transmission Date: 20201104
  Serious: Yes (Other)
  Sender: FDA-Public Use
  Company Number: US-ROCHE-677368

PATIENT
  Sex: Female

DRUGS (1)
  1. IBANDRONIC ACID. [Suspect]
     Active Substance: IBANDRONIC ACID
     Indication: OSTEOPOROSIS
     Route: 065
     Dates: start: 2004, end: 200908

REACTIONS (5)
  - Tooth extraction [Unknown]
  - Osteomyelitis [Not Recovered/Not Resolved]
  - Hypoaesthesia [Not Recovered/Not Resolved]
  - Swelling face [Not Recovered/Not Resolved]
  - Endodontic procedure [Unknown]

NARRATIVE: CASE EVENT DATE: 200901
